FAERS Safety Report 13248902 (Version 1)
Quarter: 2017Q1

REPORT INFORMATION
  Report Type: Spontaneous
  Country: US (occurrence: US)
  Receive Date: 20170218
  Receipt Date: 20170218
  Transmission Date: 20170428
  Serious: No
  Sender: FDA-Public Use
  Company Number: US-ALLERGAN-1637283US

PATIENT
  Age: 78 Year
  Sex: Female

DRUGS (1)
  1. RESTASIS [Suspect]
     Active Substance: CYCLOSPORINE
     Indication: DRY EYE
     Dosage: UNK
     Route: 047

REACTIONS (4)
  - Swollen tongue [Recovered/Resolved]
  - Mouth ulceration [Recovered/Resolved]
  - Lip swelling [Recovered/Resolved]
  - Anaphylactic reaction [Recovered/Resolved]
